FAERS Safety Report 14655557 (Version 1)
Quarter: 2018Q1

REPORT INFORMATION
  Report Type: Spontaneous
  Country: GB (occurrence: GB)
  Receive Date: 20180319
  Receipt Date: 20180319
  Transmission Date: 20180509
  Serious: Yes (Other)
  Sender: FDA-Public Use
  Company Number: GB-TEVA-2018-GB-870281

PATIENT
  Sex: Female
  Weight: 82.9 kg

DRUGS (19)
  1. MENTHOL. [Concomitant]
     Active Substance: MENTHOL
  2. PARACETAMOL [Concomitant]
     Active Substance: ACETAMINOPHEN
  3. BISOPROLOL [Concomitant]
     Active Substance: BISOPROLOL
  4. CARBOCISTEINE [Concomitant]
     Active Substance: CARBOCYSTEINE
  5. LINEZOLID. [Suspect]
     Active Substance: LINEZOLID
     Indication: ENTEROCOCCAL INFECTION
     Dosage: 1200 MILLIGRAM DAILY;
     Route: 048
  6. LANSOPRAZOLE. [Concomitant]
     Active Substance: LANSOPRAZOLE
  7. OMEPRAZOLE. [Concomitant]
     Active Substance: OMEPRAZOLE
  8. VANCOMYCIN [Concomitant]
     Active Substance: VANCOMYCIN
  9. MEROPENEM. [Concomitant]
     Active Substance: MEROPENEM
  10. METFORMIN [Concomitant]
     Active Substance: METFORMIN HYDROCHLORIDE
  11. DIPROBASE [Concomitant]
     Active Substance: CHLOROCRESOL
  12. FOLIC ACID. [Concomitant]
     Active Substance: FOLIC ACID
  13. AQUEOUS CREAM [Concomitant]
  14. AMITRIPTYLINE [Suspect]
     Active Substance: AMITRIPTYLINE
     Dosage: 20 MILLIGRAM DAILY; AT NIGHT.
     Route: 048
  15. ATORVASTATIN [Concomitant]
     Active Substance: ATORVASTATIN
  16. AMLODIPINE [Concomitant]
     Active Substance: AMLODIPINE BESYLATE
  17. DALTEPARIN [Concomitant]
     Active Substance: DALTEPARIN
  18. CASSIA [Concomitant]
  19. TAZOCIN [Concomitant]
     Active Substance: PIPERACILLIN SODIUM\TAZOBACTAM SODIUM

REACTIONS (6)
  - Hypertonia [Unknown]
  - Coma scale abnormal [Unknown]
  - Serotonin syndrome [Recovered/Resolved]
  - Muscle twitching [Unknown]
  - Clonus [Unknown]
  - Vertigo [Unknown]
